FAERS Safety Report 12644457 (Version 7)
Quarter: 2017Q2

REPORT INFORMATION
  Report Type: Report from Study
  Country: NL (occurrence: NL)
  Receive Date: 20160811
  Receipt Date: 20170526
  Transmission Date: 20170830
  Serious: Yes (Life-Threatening, Hospitalization, Other)
  Sender: FDA-Public Use
  Company Number: PHHO2016NL011485

PATIENT
  Age: 69 Year
  Sex: Female
  Weight: 70.2 kg

DRUGS (4)
  1. SALBUTAMOL [Concomitant]
     Active Substance: ALBUTEROL
     Indication: ASTHMA
     Dosage: AS NEEDED
     Route: 065
     Dates: start: 19960101
  2. TRAMETINIB [Suspect]
     Active Substance: TRAMETINIB
     Indication: CHOLANGIOCARCINOMA
     Dosage: 2 MG, QD
     Route: 048
     Dates: start: 20160802, end: 20160806
  3. LEE011 [Suspect]
     Active Substance: RIBOCICLIB
     Indication: CHOLANGIOCARCINOMA
     Dosage: 200 MG, QD
     Route: 048
     Dates: start: 20160802, end: 20160806
  4. PARACETAMOL [Concomitant]
     Active Substance: ACETAMINOPHEN
     Indication: PAIN
     Dosage: AS NEEDED
     Route: 065
     Dates: start: 20141201

REACTIONS (2)
  - Abdominal pain [Recovered/Resolved]
  - Hepatotoxicity [Recovered/Resolved]

NARRATIVE: CASE EVENT DATE: 20160805
